FAERS Safety Report 13002410 (Version 2)
Quarter: 2016Q4

REPORT INFORMATION
  Report Type: Report from Study
  Country: US (occurrence: US)
  Receive Date: 20161206
  Receipt Date: 20161212
  Transmission Date: 20170207
  Serious: Yes (Other)
  Sender: FDA-Public Use
  Company Number: US-JNJFOC-20161129385

PATIENT
  Age: 12 Year
  Sex: Male
  Weight: 79.38 kg

DRUGS (4)
  1. REMICADE [Suspect]
     Active Substance: INFLIXIMAB
     Indication: ANKYLOSING SPONDYLITIS
     Route: 042
  2. REMICADE [Suspect]
     Active Substance: INFLIXIMAB
     Indication: ANKYLOSING SPONDYLITIS
     Dosage: 200 TO 250 MG
     Route: 042
  3. REMICADE [Suspect]
     Active Substance: INFLIXIMAB
     Indication: ANKYLOSING SPONDYLITIS
     Route: 042
     Dates: start: 201001
  4. REMICADE [Suspect]
     Active Substance: INFLIXIMAB
     Indication: ANKYLOSING SPONDYLITIS
     Dosage: 200 TO 250 MG
     Route: 042

REACTIONS (8)
  - Off label use [Unknown]
  - Product use issue [Unknown]
  - Musculoskeletal stiffness [Unknown]
  - Accident [Unknown]
  - Ankylosing spondylitis [Unknown]
  - Joint effusion [Unknown]
  - Joint range of motion decreased [Unknown]
  - Coccidioidomycosis [Not Recovered/Not Resolved]

NARRATIVE: CASE EVENT DATE: 201001
